FAERS Safety Report 8235071-8 (Version None)
Quarter: 2012Q1

REPORT INFORMATION
  Report Type: 
  Country: None (occurrence: None)
  Receive Date: 20120326
  Receipt Date: 20120319
  Transmission Date: 20120608
  Serious: Yes (Congenital Anomaly)
  Sender: FDA-Public Use
  Company Number: DE-GLAXOSMITHKLINE-D0074930A

PATIENT
  Sex: Female
  Weight: 3.3 kg

DRUGS (2)
  1. FOLIC ACID [Concomitant]
     Indication: PROPHYLAXIS OF NEURAL TUBE DEFECT
     Dosage: 5MG PER DAY
     Route: 064
     Dates: start: 20101213
  2. LAMOTRGINE [Suspect]
     Indication: BIPOLAR DISORDER
     Dosage: 350MG PER DAY
     Route: 064
     Dates: start: 20101213, end: 20110922

REACTIONS (6)
  - EXPOSURE DURING BREAST FEEDING [None]
  - HAEMANGIOMA [None]
  - INFANTILE COLIC [None]
  - FOETAL EXPOSURE DURING PREGNANCY [None]
  - THROMBOCYTOSIS [None]
  - HIP DYSPLASIA [None]
